FAERS Safety Report 16210401 (Version 3)
Quarter: 2020Q2

REPORT INFORMATION
  Report Type: Report from Study
  Country: CR (occurrence: CR)
  Receive Date: 20190418
  Receipt Date: 20200601
  Transmission Date: 20200713
  Serious: Yes (Hospitalization, Other)
  Sender: FDA-Public Use
  Company Number: PHHY2018CR069826

PATIENT
  Age: 36 Year
  Sex: Male
  Weight: 66 kg

DRUGS (1)
  1. GILENYA [Suspect]
     Active Substance: FINGOLIMOD HYDROCHLORIDE
     Indication: RELAPSING-REMITTING MULTIPLE SCLEROSIS
     Dosage: 0.5 MG, QD
     Route: 048
     Dates: start: 20171101

REACTIONS (27)
  - Tremor [Unknown]
  - Laziness [Unknown]
  - Productive cough [Unknown]
  - Malaise [Unknown]
  - Injury [Unknown]
  - Eating disorder [Unknown]
  - Constipation [Unknown]
  - Depression [Unknown]
  - Pollakiuria [Unknown]
  - Contusion [Unknown]
  - Gait disturbance [Unknown]
  - Bone marrow disorder [Unknown]
  - Dysstasia [Unknown]
  - Memory impairment [Unknown]
  - Nail disorder [Unknown]
  - Fall [Unknown]
  - Nasal cavity mass [Unknown]
  - Dyskinesia [Unknown]
  - Drug abuse [Unknown]
  - Spinal cord injury [Unknown]
  - Weight increased [Recovering/Resolving]
  - Dysphagia [Unknown]
  - Muscle rigidity [Unknown]
  - Traumatic haematoma [Unknown]
  - Dysuria [Unknown]
  - Abnormal behaviour [Unknown]
  - Fatigue [Unknown]
